FAERS Safety Report 5573889-0 (Version None)
Quarter: 2007Q4

REPORT INFORMATION
  Report Type: 
  Country: None (occurrence: None)
  Receive Date: 20071226
  Receipt Date: 20071220
  Transmission Date: 20080405
  Serious: Yes (Life-Threatening, Hospitalization, Other)
  Sender: FDA-Public Use
  Company Number: JP-ABBOTT-07P-087-0426188-00

PATIENT
  Sex: Female
  Weight: 46.5 kg

DRUGS (18)
  1. KLARICID TABLETS [Suspect]
     Indication: UPPER RESPIRATORY TRACT INFLAMMATION
     Route: 048
     Dates: start: 20061123, end: 20061125
  2. GLICLAZIDE [Interacting]
     Indication: DIABETES MELLITUS
     Route: 048
     Dates: start: 20060501, end: 20061126
  3. GLICLAZIDE [Interacting]
     Route: 048
     Dates: end: 20060501
  4. WARFARIN POTASSIUM [Interacting]
     Indication: ANGINA PECTORIS
     Route: 048
     Dates: start: 19880101
  5. WARFARIN POTASSIUM [Interacting]
     Route: 048
  6. WARFARIN POTASSIUM [Interacting]
  7. BUCOLOME [Interacting]
     Indication: ANTICOAGULANT THERAPY
     Route: 048
  8. BUCOLOME [Interacting]
     Route: 048
     Dates: start: 20060501
  9. PRANLUKAST HYDRATE [Interacting]
     Indication: UPPER RESPIRATORY TRACT INFECTION
     Route: 048
     Dates: start: 20061123, end: 20061125
  10. ACETYLSALICYLIC ACID SRT [Suspect]
     Indication: ANGINA PECTORIS
  11. ACARBOSE [Concomitant]
     Indication: DIABETES MELLITUS
     Route: 048
     Dates: start: 20060501, end: 20061101
  12. ACARBOSE [Concomitant]
     Route: 048
     Dates: end: 20060501
  13. ACARBOSE [Concomitant]
     Route: 048
     Dates: start: 20060501, end: 20061126
  14. L-CARBOCISTEINE [Concomitant]
     Indication: UPPER RESPIRATORY TRACT INFLAMMATION
     Route: 048
     Dates: start: 20061123, end: 20061125
  15. ISOSORBIDE MONONITRATE [Concomitant]
     Indication: ANGINA PECTORIS
     Route: 048
  16. AMLODIPINE BESYLATE [Concomitant]
     Indication: HYPERTENSION
     Route: 048
  17. PRAVASTATIN SODIUM [Concomitant]
     Indication: HYPERLIPIDAEMIA
     Route: 048
  18. SODIUM RISEDRONATE HYDRATE [Concomitant]
     Indication: OSTEOPOROSIS
     Route: 048

REACTIONS (3)
  - DRUG INTERACTION [None]
  - HAEMORRHAGE SUBCUTANEOUS [None]
  - HYPOGLYCAEMIA [None]
